FAERS Safety Report 16661529 (Version 1)
Quarter: 2019Q3

REPORT INFORMATION
  Report Type: Spontaneous
  Country: US (occurrence: US)
  Receive Date: 20190802
  Receipt Date: 20190802
  Transmission Date: 20191004
  Serious: No
  Sender: FDA-Public Use
  Company Number: US-ENDO PHARMACEUTICALS INC-2018-042706

PATIENT
  Age: 64 Year
  Sex: Male
  Weight: 63.49 kg

DRUGS (5)
  1. KLONOPIN [Concomitant]
     Active Substance: CLONAZEPAM
     Indication: STRESS
  2. TESTOPEL [Suspect]
     Active Substance: TESTOSTERONE
     Indication: BLOOD TESTOSTERONE DECREASED
     Dosage: 10 PELLETS (750 MG) INSERTED
     Route: 058
     Dates: start: 20180622, end: 2018
  3. SERTRALINE [Concomitant]
     Active Substance: SERTRALINE HYDROCHLORIDE
     Indication: DEPRESSION
     Dosage: UNK
  4. TRICOR [Concomitant]
     Active Substance: FENOFIBRATE
     Indication: BLOOD CHOLESTEROL INCREASED
  5. CORGARD [Concomitant]
     Active Substance: NADOLOL
     Indication: HYPERTENSION

REACTIONS (7)
  - Expulsion of medication [Recovered/Resolved]
  - Implant site bruising [Unknown]
  - Prescribed overdose [Recovered/Resolved]
  - Implant site pain [Unknown]
  - Product quality issue [Not Recovered/Not Resolved]
  - Incision site complication [Unknown]
  - Device dislocation [Not Recovered/Not Resolved]

NARRATIVE: CASE EVENT DATE: 2018
